FAERS Safety Report 6994657-9 (Version None)
Quarter: 2010Q3

REPORT INFORMATION
  Report Type: 
  Country: None (occurrence: None)
  Receive Date: 20100914
  Receipt Date: 20100914
  Transmission Date: 20110219
  Serious: Yes (Hospitalization)
  Sender: FDA-Public Use
  Company Number: None

PATIENT
  Age: 80 Year
  Sex: Female

DRUGS (1)
  1. PREVAGEN (APOAEQUORIN) 10 MG, QUINCY BIOSCIENCE INC. [Suspect]
     Indication: SUPPORTIVE CARE
     Dosage: ONE CAPSULE, QD, ORAL
     Route: 048
     Dates: start: 20100522, end: 20100621

REACTIONS (3)
  - DIZZINESS [None]
  - FALL [None]
  - HIP FRACTURE [None]
